FAERS Safety Report 9933875 (Version 2)
Quarter: 2014Q1

REPORT INFORMATION
  Report Type: Report from Study
  Country: US (occurrence: US)
  Receive Date: 20140228
  Receipt Date: 20140228
  Transmission Date: 20141002
  Serious: Yes (Other)
  Sender: FDA-Public Use
  Company Number: US-MYLANLABS-2013S1017682

PATIENT
  Age: 21 Year
  Sex: Female

DRUGS (1)
  1. AMNESTEEM CAPSULES [Suspect]
     Dates: start: 20110130, end: 201109

REACTIONS (2)
  - Abortion induced [Recovered/Resolved]
  - Maternal exposure before pregnancy [Recovered/Resolved]
